FAERS Safety Report 24816738 (Version 6)
Quarter: 2025Q1

REPORT INFORMATION
  Report Type: Spontaneous
  Country: FR (occurrence: FR)
  Receive Date: 20250107
  Receipt Date: 20250310
  Transmission Date: 20250409
  Serious: Yes (Hospitalization, Other)
  Sender: JOHNSON AND JOHNSON
  Company Number: FR-AFSSAPS-AN2024001791

PATIENT
  Age: 95 Year
  Sex: Male
  Weight: 74 kg

DRUGS (16)
  1. ERLEADA [Suspect]
     Active Substance: APALUTAMIDE
     Indication: Prostate cancer
     Route: 048
  2. ERLEADA [Suspect]
     Active Substance: APALUTAMIDE
     Dosage: 240 MG, QD
     Route: 048
     Dates: start: 202409, end: 20241126
  3. DICLOFENAC [Suspect]
     Active Substance: DICLOFENAC
     Indication: Pain
     Dosage: 1 %, QD
     Dates: end: 20241126
  4. RUPATADINE [Suspect]
     Active Substance: RUPATADINE
     Indication: Pruritus
     Dosage: 10 MG, QD
  5. ACETAMINOPHEN\CODEINE PHOSPHATE [Suspect]
     Active Substance: ACETAMINOPHEN\CODEINE PHOSPHATE
     Indication: Pain
     Dosage: 2 DOSAGE FORM, QD
  6. PRADAXA [Concomitant]
     Active Substance: DABIGATRAN ETEXILATE MESYLATE
     Indication: Product used for unknown indication
     Dosage: 2 DOSAGE FORM, QD
  7. INDAPAMIDE\PERINDOPRIL [Concomitant]
     Active Substance: INDAPAMIDE\PERINDOPRIL
     Indication: Product used for unknown indication
     Dosage: 1 DOSAGE FORM, QD
  8. LERCANIDIPINE [Concomitant]
     Active Substance: LERCANIDIPINE
     Indication: Product used for unknown indication
     Dosage: 10 MG, QD
  9. LERCANIDIPINE [Concomitant]
     Active Substance: LERCANIDIPINE
     Dosage: 10 MG, QD
  10. PAROXETINE [Concomitant]
     Active Substance: PAROXETINE
     Indication: Product used for unknown indication
     Dosage: 20 MG, QD
  11. ALPRAZOLAM [Concomitant]
     Active Substance: ALPRAZOLAM
     Indication: Product used for unknown indication
     Dosage: 0.25 MG, QD
  12. ALPRAZOLAM [Concomitant]
     Active Substance: ALPRAZOLAM
     Dosage: 0.25 MG, QD
  13. POLYETHYLENE GLYCOL 4000 [Concomitant]
     Active Substance: POLYETHYLENE GLYCOL 4000
     Indication: Product used for unknown indication
     Dosage: 10 MG, QD
  14. CHOLECALCIFEROL [Concomitant]
     Active Substance: CHOLECALCIFEROL
     Indication: Product used for unknown indication
     Dosage: 50000 IU, QMO
  15. ACETAMINOPHEN [Concomitant]
     Active Substance: ACETAMINOPHEN
     Indication: Product used for unknown indication
     Dosage: 1500 MG, QD
  16. ENANTONE LP [Concomitant]
     Active Substance: LEUPROLIDE ACETATE
     Indication: Product used for unknown indication
     Dates: end: 20241126

REACTIONS (1)
  - Agranulocytosis [Recovered/Resolved]

NARRATIVE: CASE EVENT DATE: 20241126
